FAERS Safety Report 5884299-0 (Version None)
Quarter: 2008Q3

REPORT INFORMATION
  Report Type: 
  Country: None (occurrence: None)
  Receive Date: 20080915
  Receipt Date: 20080902
  Transmission Date: 20090109
  Serious: Yes (Life-Threatening)
  Sender: FDA-Public Use
  Company Number: PHHO1996CA02941

PATIENT
  Sex: Male
  Weight: 101 kg

DRUGS (1)
  1. SANDIMMUNE [Suspect]
     Route: 048
     Dates: start: 19960919

REACTIONS (2)
  - CONVULSION [None]
  - HYPERTENSION [None]
